FAERS Safety Report 25938082 (Version 1)
Quarter: 2025Q4

REPORT INFORMATION
  Report Type: Spontaneous
  Country: JP (occurrence: JP)
  Receive Date: 20251018
  Receipt Date: 20251018
  Transmission Date: 20260117
  Serious: Yes (Other)
  Sender: AMGEN
  Company Number: JP-AMGEN-JPNSP2025202123

PATIENT
  Age: 62 Year
  Sex: Female
  Weight: 47 kg

DRUGS (13)
  1. PEGFILGRASTIM [Suspect]
     Active Substance: PEGFILGRASTIM
     Indication: Prophylaxis
     Dosage: UNK UNK, AFTER CHEMO, ON DAY THREE
     Route: 065
  2. PEGFILGRASTIM [Suspect]
     Active Substance: PEGFILGRASTIM
     Dosage: UNK UNK, AFTER CHEMO, ON DAY FOUR
     Route: 065
  3. FILGRASTIM [Suspect]
     Active Substance: FILGRASTIM
     Indication: Prophylaxis
     Dosage: UNK
     Route: 065
  4. EPIRUBICIN [Suspect]
     Active Substance: EPIRUBICIN
     Indication: Invasive ductal breast carcinoma
     Dosage: 89 MILLIGRAM/SQ. METER (140 MG/BODY [89 MG/M2 ; 98% DOSE])
     Route: 065
  5. EPIRUBICIN [Suspect]
     Active Substance: EPIRUBICIN
     Dosage: 82 MILLIGRAM/SQ. METER (EPIRUBICIN 130 MG/BODY [82 MG/M2; 91% DOSE])
     Route: 065
  6. EPIRUBICIN [Suspect]
     Active Substance: EPIRUBICIN
     Dosage: 89 MILLIGRAM/SQ. METER (140MG/BODY [89 MG/M2; 98% DOSE])
     Route: 065
  7. CYCLOPHOSPHAMIDE [Suspect]
     Active Substance: CYCLOPHOSPHAMIDE
     Indication: Invasive ductal breast carcinoma
     Dosage: 950 MG/BODY [560 MG/M2; 100% DOSE
     Route: 065
  8. CYCLOPHOSPHAMIDE [Suspect]
     Active Substance: CYCLOPHOSPHAMIDE
     Dosage: 538 MILLIGRAM/SQ. METER (850 MG/BODY [538 MG/M2; 90% DOSE])
     Route: 065
  9. CYCLOPHOSPHAMIDE [Suspect]
     Active Substance: CYCLOPHOSPHAMIDE
     Dosage: 560 MILLIGRAM/SQ. METER ( 950 MG/BODY [560 MG/M2; 100% DOSE]))
     Route: 065
  10. PALONOSETRON HYDROCHLORIDE [Concomitant]
     Active Substance: PALONOSETRON HYDROCHLORIDE
     Indication: Product used for unknown indication
     Dosage: 0.75 MILLIGRAM, ON DAY ONE
     Route: 040
  11. DEXAMETHASONE [Concomitant]
     Active Substance: DEXAMETHASONE
     Indication: Product used for unknown indication
     Dosage: 9.9 MILLIGRAM, ON DAY ONE
     Route: 040
  12. DEXAMETHASONE [Concomitant]
     Active Substance: DEXAMETHASONE
     Dosage: 8 MILLIGRAM, AFTER BREAKFAST AND LUNCH ON DAYS TWO TO FOUR
     Route: 048
  13. APREPITANT [Concomitant]
     Active Substance: APREPITANT
     Indication: Product used for unknown indication
     Dosage: DAY ONE AT 125 MG, AND ON DAYS TWO AND THREE AT 80 MG
     Route: 048

REACTIONS (8)
  - Neutropenia [Unknown]
  - Thrombocytopenia [Unknown]
  - Leukocytosis [Unknown]
  - White blood cell count decreased [Unknown]
  - Neutrophilia [Unknown]
  - Nausea [Unknown]
  - Constipation [Unknown]
  - Fatigue [Unknown]
